FAERS Safety Report 4614220-4 (Version None)
Quarter: 2005Q1

REPORT INFORMATION
  Report Type: 
  Country: None (occurrence: None)
  Receive Date: 20050315
  Receipt Date: 20050304
  Transmission Date: 20050727
  Serious: Yes (Death, Other)
  Sender: FDA-Public Use
  Company Number: USA-2004-0018124

PATIENT
  Age: 53 Year
  Sex: Female
  Weight: 122.4 kg

DRUGS (4)
  1. MS CONTIN [Suspect]
     Indication: PAIN
     Dates: end: 20030906
  2. METHADONE(METHADONE) [Suspect]
     Dates: end: 20030906
  3. TRAMADOL HCL [Suspect]
  4. QUININE(QUININE) [Suspect]

REACTIONS (15)
  - ACCIDENTAL OVERDOSE [None]
  - APNOEA [None]
  - BRAIN OEDEMA [None]
  - CARDIOMEGALY [None]
  - COMA [None]
  - CONFUSIONAL STATE [None]
  - HYPOTENSION [None]
  - ILEAL PERFORATION [None]
  - INTESTINAL INFARCTION [None]
  - MEDICATION ERROR [None]
  - NARCOTIC INTOXICATION [None]
  - PERITONITIS [None]
  - PULMONARY OEDEMA [None]
  - PULSE ABSENT [None]
  - RESPIRATORY ARREST [None]
